FAERS Safety Report 9100459 (Version 1)
Quarter: 2013Q1

REPORT INFORMATION
  Report Type: Spontaneous
  Country: FR (occurrence: FR)
  Receive Date: 20130215
  Receipt Date: 20130215
  Transmission Date: 20140127
  Serious: Yes (Hospitalization)
  Sender: FDA-Public Use
  Company Number: FR-ROCHE-1190398

PATIENT
  Age: 84 Year
  Sex: Female

DRUGS (9)
  1. ROCEPHINE [Suspect]
     Indication: BACTERIAL PYELONEPHRITIS
     Route: 042
     Dates: start: 20120414, end: 20120420
  2. PREVISCAN [Interacting]
     Indication: THROMBOSIS PROPHYLAXIS
     Route: 048
     Dates: end: 20120420
  3. PREVISCAN [Interacting]
     Route: 065
     Dates: start: 20120502
  4. CLAMOXYL [Interacting]
     Indication: BACTERIAL PYELONEPHRITIS
     Route: 048
     Dates: start: 20120420
  5. FUROSEMIDE [Concomitant]
     Route: 065
  6. CORDARONE [Concomitant]
     Dosage: 1 TABLET
     Route: 065
  7. MEDIATENSYL [Concomitant]
     Dosage: 1 TABLET
     Route: 065
  8. PHYSIOTENS [Concomitant]
     Dosage: 2 TABLETS
     Route: 065
  9. MOPRAL (FRANCE) [Concomitant]
     Dosage: 1 TABLET
     Route: 065

REACTIONS (4)
  - Abdominal pain [Recovered/Resolved]
  - Haematoma [Recovered/Resolved]
  - Arthralgia [Recovered/Resolved]
  - Drug interaction [Unknown]
